FAERS Safety Report 16014850 (Version 3)
Quarter: 2019Q2

REPORT INFORMATION
  Report Type: Spontaneous
  Country: US (occurrence: US)
  Receive Date: 20190227
  Receipt Date: 20190409
  Transmission Date: 20190711
  Serious: No
  Sender: FDA-Public Use
  Company Number: US-SHIRE-US201906573

PATIENT
  Sex: Female

DRUGS (2)
  1. XIIDRA [Suspect]
     Active Substance: LIFITEGRAST
     Indication: DRY EYE
     Route: 047
     Dates: start: 20190208
  2. RESTASIS [Concomitant]
     Active Substance: CYCLOSPORINE
     Indication: PRODUCT USED FOR UNKNOWN INDICATION

REACTIONS (8)
  - Tooth infection [Unknown]
  - Dysgeusia [Unknown]
  - Vision blurred [Unknown]
  - Rash [Unknown]
  - Throat irritation [Unknown]
  - Product container issue [Unknown]
  - Instillation site reaction [Unknown]
  - Instillation site pain [Unknown]
